FAERS Safety Report 6121864-X (Version None)
Quarter: 2009Q1

REPORT INFORMATION
  Report Type: 
  Country: None (occurrence: None)
  Receive Date: 20090317
  Receipt Date: 20090317
  Transmission Date: 20090719
  Serious: Yes (Other)
  Sender: FDA-Public Use
  Company Number: US-PFIZER INC-2009156229

PATIENT

DRUGS (2)
  1. LIPITOR [Suspect]
     Indication: CARDIAC FAILURE
     Dosage: UNK
     Dates: end: 20090101
  2. LIPITOR [Suspect]
     Indication: CARDIOVASCULAR DISORDER

REACTIONS (1)
  - RENAL FAILURE [None]
